FAERS Safety Report 4605766-3 (Version None)
Quarter: 2005Q1

REPORT INFORMATION
  Report Type: 
  Country: None (occurrence: None)
  Receive Date: 20050311
  Receipt Date: 20041215
  Transmission Date: 20050727
  Serious: Yes (Life-Threatening, Hospitalization, Disabling)
  Sender: FDA-Public Use
  Company Number: US-MERCK-0412USA01966

PATIENT
  Age: 57 Year
  Sex: Female
  Weight: 57 kg

DRUGS (5)
  1. VIOXX [Suspect]
     Indication: ARTHRITIS
     Route: 048
     Dates: start: 20001127
  2. VIOXX [Suspect]
     Route: 048
     Dates: start: 20010501
  3. ATENOLOL [Concomitant]
     Route: 048
  4. LEXAPRO [Concomitant]
     Route: 048
  5. ZOCOR [Concomitant]
     Route: 048

REACTIONS (34)
  - ABDOMINAL PAIN [None]
  - ANXIETY [None]
  - BACK PAIN [None]
  - BREAST MASS [None]
  - CHEST WALL PAIN [None]
  - COLD SWEAT [None]
  - CONTUSION [None]
  - COUGH [None]
  - DEPRESSION [None]
  - DIARRHOEA [None]
  - DIFFICULTY IN WALKING [None]
  - DRUG INEFFECTIVE [None]
  - DYSKINESIA [None]
  - DYSPEPSIA [None]
  - FATIGUE [None]
  - GASTROOESOPHAGEAL REFLUX DISEASE [None]
  - HAEMORRHAGE [None]
  - HYPERLIPIDAEMIA [None]
  - HYPOTENSION [None]
  - IDIOPATHIC THROMBOCYTOPENIC PURPURA [None]
  - INFECTION [None]
  - INSOMNIA [None]
  - LEUKOPENIA [None]
  - LOCALISED INFECTION [None]
  - MEMORY IMPAIRMENT [None]
  - NASAL CONGESTION [None]
  - NAUSEA [None]
  - NIGHT CRAMPS [None]
  - PHARYNGOLARYNGEAL PAIN [None]
  - PRODUCTIVE COUGH [None]
  - SPUTUM DISCOLOURED [None]
  - STRESS [None]
  - SUICIDAL IDEATION [None]
  - VOMITING [None]
